FAERS Safety Report 5585949-9 (Version None)
Quarter: 2007Q4

REPORT INFORMATION
  Report Type: 
  Country: None (occurrence: None)
  Receive Date: 20071205
  Receipt Date: 20070802
  Transmission Date: 20080405
  Serious: Yes (Other)
  Sender: FDA-Public Use
  Company Number: HQWYE380103AUG07

PATIENT
  Age: 52 Year
  Sex: Female
  Weight: 68.1 kg

DRUGS (7)
  1. EFFEXOR XR [Suspect]
     Indication: PANIC ATTACK
     Dosage: 300 MG 1X PER 1 DAY, ORAL ; ^SLOWLY INCREASED^, ORAL
     Route: 048
     Dates: start: 20061101, end: 20070207
  2. EFFEXOR XR [Suspect]
     Indication: PANIC ATTACK
     Dosage: 300 MG 1X PER 1 DAY, ORAL ; ^SLOWLY INCREASED^, ORAL
     Route: 048
     Dates: start: 20070208
  3. ZETIA [Concomitant]
  4. LESCOL [Concomitant]
  5. ISOSORBIDE (ISOSORBIDE) [Concomitant]
  6. ATENOLOL [Concomitant]
  7. KLONOPIN [Concomitant]

REACTIONS (3)
  - BLOOD CHOLESTEROL INCREASED [None]
  - SUICIDAL IDEATION [None]
  - WEIGHT INCREASED [None]
